FAERS Safety Report 5989583-8 (Version None)
Quarter: 2008Q4

REPORT INFORMATION
  Report Type: 
  Country: None (occurrence: None)
  Receive Date: 20081204
  Receipt Date: 20081027
  Transmission Date: 20090506
  Serious: Yes (Other)
  Sender: FDA-Public Use
  Company Number: CIP08002500

PATIENT
  Age: 30 Year
  Sex: Female

DRUGS (1)
  1. DANTRIUM [Suspect]
     Indication: NEUROLEPTIC MALIGNANT SYNDROME

REACTIONS (1)
  - CARDIAC FAILURE [None]
